FAERS Safety Report 7791647-3 (Version None)
Quarter: 2011Q4

REPORT INFORMATION
  Report Type: 
  Country: None (occurrence: None)
  Receive Date: 20111003
  Receipt Date: 20110919
  Transmission Date: 20120403
  Serious: Yes (Other)
  Sender: FDA-Public Use
  Company Number: DE-ELI_LILLY_AND_COMPANY-DE201103003929

PATIENT
  Age: 73 Year
  Sex: Female

DRUGS (4)
  1. VITAMIN D [Concomitant]
  2. DICLOFENAC SODIUM [Concomitant]
  3. FORTEO [Suspect]
     Indication: OSTEOPOROSIS
     Dosage: 20 UG, DAILY (1/D)
     Route: 058
     Dates: start: 20101214
  4. CALCIUM CARBONATE [Concomitant]

REACTIONS (14)
  - HEART RATE INCREASED [None]
  - ARTHRALGIA [None]
  - BONE PAIN [None]
  - DIZZINESS [None]
  - DEPRESSION [None]
  - LISTLESS [None]
  - ASTHENIA [None]
  - DYSPNOEA [None]
  - NAUSEA [None]
  - MUSCLE SPASMS [None]
  - ARRHYTHMIA [None]
  - MYALGIA [None]
  - SLEEP DISORDER [None]
  - HEART RATE ABNORMAL [None]
